FAERS Safety Report 17848498 (Version 1)
Quarter: 2020Q2

REPORT INFORMATION
  Report Type: Spontaneous
  Country: NL (occurrence: NL)
  Receive Date: 20200602
  Receipt Date: 20200602
  Transmission Date: 20200714
  Serious: Yes (Other)
  Sender: FDA-Public Use
  Company Number: NL-SUN PHARMACEUTICAL INDUSTRIES LTD-2020RR-248916

PATIENT
  Age: 64 Year
  Sex: Male
  Weight: 130 kg

DRUGS (4)
  1. OMEPRAZOL 40 MGOMEPRAZOL TABLET MSR 40MG [Concomitant]
     Indication: PRODUCT USED FOR UNKNOWN INDICATION
     Dosage: ALLE DRIE 1X DAAGS TABLETTEN
     Route: 065
  2. ACETYL SALICYL 80 MGACETYLSALICYLZUUR TABLET  80MG [Concomitant]
     Indication: PRODUCT USED FOR UNKNOWN INDICATION
     Dosage: ALLE DRIE 1X DAAGS TABLETTEN
     Route: 065
  3. METOPROLOL RET 50 MGMETOPROLOL TABLET MGA  50MG (SUCCINAAT) [Concomitant]
     Indication: PRODUCT USED FOR UNKNOWN INDICATION
     Dosage: ALLE DRIE 1X DAAGS TABLETTEN
     Route: 065
  4. ATORVASTATIN [Suspect]
     Active Substance: ATORVASTATIN
     Indication: HYPERCHOLESTEROLAEMIA
     Dosage: 1X DAAGS 10 MG
     Route: 065
     Dates: start: 20200224, end: 20200415

REACTIONS (1)
  - Skin exfoliation [Recovering/Resolving]

NARRATIVE: CASE EVENT DATE: 20200316
